FAERS Safety Report 6765704-4 (Version None)
Quarter: 2010Q2

REPORT INFORMATION
  Report Type: 
  Country: None (occurrence: None)
  Receive Date: 20100611
  Receipt Date: 20100601
  Transmission Date: 20101027
  Serious: Yes (Hospitalization)
  Sender: FDA-Public Use
  Company Number: FR-AMGEN-QUU413848

PATIENT
  Sex: Female

DRUGS (2)
  1. ENBREL [Suspect]
     Indication: ANKYLOSING SPONDYLITIS
     Dosage: UNKNOWN FOR MORE THAN 1 YEAR TO 2010, THEN TEMPORARY WITHDRAWAL AND THEN UNKNOWN FROM 2010 TO 2010
     Route: 058
     Dates: end: 20100101
  2. ENBREL [Suspect]
     Route: 058
     Dates: start: 20100101, end: 20100101

REACTIONS (1)
  - VASCULITIS NECROTISING [None]
